FAERS Safety Report 23874436 (Version 1)
Quarter: 2024Q2

REPORT INFORMATION
  Report Type: Spontaneous
  Country: US (occurrence: US)
  Receive Date: 20240520
  Receipt Date: 20240520
  Transmission Date: 20240715
  Serious: No
  Sender: FDA-Public Use
  Company Number: US-BAYER-2024A072297

PATIENT
  Age: 81 Year
  Sex: Male

DRUGS (1)
  1. NUBEQA [Suspect]
     Active Substance: DAROLUTAMIDE
     Indication: Prostate cancer
     Dosage: 300 MG, BID
     Dates: start: 202310

REACTIONS (3)
  - Hyperhidrosis [None]
  - Hot flush [None]
  - Off label use [None]

NARRATIVE: CASE EVENT DATE: 20231001
